FAERS Safety Report 17729102 (Version 1)
Quarter: 2020Q2

REPORT INFORMATION
  Report Type: Spontaneous
  Country: FR (occurrence: FR)
  Receive Date: 20200430
  Receipt Date: 20200430
  Transmission Date: 20200714
  Serious: Yes (Hospitalization)
  Sender: FDA-Public Use
  Company Number: FR-PFIZER INC-2020171070

PATIENT
  Age: 16 Year
  Sex: Male
  Weight: 70 kg

DRUGS (4)
  1. PANTOPRAZOLE MYLAN [Suspect]
     Active Substance: PANTOPRAZOLE SODIUM
     Indication: PROPHYLAXIS AGAINST GASTROINTESTINAL ULCER
     Dosage: 40 MG, 1X/DAY
     Route: 048
     Dates: start: 20200317
  2. DALACINE [Suspect]
     Active Substance: CLINDAMYCIN
     Indication: SURGERY
     Dosage: 1800 MG, 1X/DAY
     Route: 042
     Dates: start: 20200317, end: 20200407
  3. PIPERACILLINE / TAZOBACTAM MYLAN [Suspect]
     Active Substance: PIPERACILLIN SODIUM\TAZOBACTAM SODIUM
     Indication: SURGERY
     Dosage: 12 G, 1X/DAY
     Route: 042
     Dates: start: 20200317, end: 20200408
  4. LYRICA [Suspect]
     Active Substance: PREGABALIN
     Indication: ANALGESIC INTERVENTION SUPPORTIVE THERAPY
     Dosage: 150 MG, 1X/DAY
     Route: 048
     Dates: start: 20200317

REACTIONS (1)
  - Agranulocytosis [Not Recovered/Not Resolved]

NARRATIVE: CASE EVENT DATE: 20200406
